FAERS Safety Report 8566257 (Version 8)
Quarter: 2012Q4

REPORT INFORMATION
  Report Type: 
  Country: US (occurrence: US)
  Receive Date: 20120510
  Receipt Date: 20121119
  Transmission Date: 20130627
  Serious: Yes (Hospitalization, Disabling, Other)
  Sender: FDA-Public Use
  Company Number: US-009507513-2011SP058947

PATIENT

DRUGS (2)
  1. NUVARING [Suspect]
     Indication: CONTRACEPTION
     Dates: start: 2003
  2. NUVARING [Suspect]
     Dates: start: 20100126, end: 20101123

REACTIONS (40)
  - Renal injury [Unknown]
  - Renal failure chronic [Not Recovered/Not Resolved]
  - Urinary tract infection [Not Recovered/Not Resolved]
  - Pulmonary embolism [Recovering/Resolving]
  - Deep vein thrombosis [Recovering/Resolving]
  - Abdominal pain [Unknown]
  - Uterine leiomyoma [Unknown]
  - Musculoskeletal chest pain [Not Recovered/Not Resolved]
  - Dyspnoea [Unknown]
  - Fear [Unknown]
  - Paranoia [Unknown]
  - Anxiety [Unknown]
  - Nasopharyngitis [Unknown]
  - Cervical dysplasia [Not Recovered/Not Resolved]
  - Sinus tachycardia [Unknown]
  - Back pain [Not Recovered/Not Resolved]
  - Cervix carcinoma [Unknown]
  - Metabolic acidosis [Unknown]
  - Avulsion fracture [Unknown]
  - Cellulitis [Recovering/Resolving]
  - Rash [Unknown]
  - Hydronephrosis [Not Recovered/Not Resolved]
  - Renal cyst [Not Recovered/Not Resolved]
  - Uterine leiomyoma [Not Recovered/Not Resolved]
  - Myomectomy [Unknown]
  - Endometriosis [Not Recovered/Not Resolved]
  - Oropharyngeal pain [Unknown]
  - Syncope [Unknown]
  - Paranasal sinus hypersecretion [Unknown]
  - Headache [Unknown]
  - Anaemia [Unknown]
  - Asthma [Unknown]
  - Dermoid cyst [Unknown]
  - Gastrooesophageal reflux disease [Unknown]
  - Obstructive airways disorder [Unknown]
  - Bronchitis [Unknown]
  - Sinusitis [Unknown]
  - Hypoglycaemia [Unknown]
  - Rhinitis seasonal [Unknown]
  - Oedema peripheral [Unknown]
